FAERS Safety Report 4949890-4 (Version None)
Quarter: 2006Q1

REPORT INFORMATION
  Report Type: 
  Country: None (occurrence: None)
  Receive Date: 20060315
  Receipt Date: 20060228
  Transmission Date: 20060701
  Serious: Yes (Disabling)
  Sender: FDA-Public Use
  Company Number: 2006-BP-02375RO

PATIENT
  Age: 62 Year
  Sex: Male

DRUGS (1)
  1. LIDOCAINE [Suspect]
     Indication: LOCAL ANAESTHESIA
     Dosage: 4 PUFFS (2 IN EACH NOSTRIL), ONCE (SEE TEXT), IN

REACTIONS (2)
  - ANOSMIA [None]
  - PROCEDURAL COMPLICATION [None]
